FAERS Safety Report 8524520-3 (Version None)
Quarter: 2012Q3

REPORT INFORMATION
  Report Type: 
  Country: None (occurrence: None)
  Receive Date: 20120716
  Receipt Date: 20120716
  Transmission Date: 20120928
  Serious: Yes (Hospitalization)
  Sender: FDA-Public Use
  Company Number: None

PATIENT
  Sex: Female
  Weight: 100.9 kg

DRUGS (3)
  1. IFOSFAMIDE [Suspect]
     Dosage: 9600 MG
  2. G-CSF (FILGRASTIM, AMGEN) 6 MG [Suspect]
     Dosage: 6 MG
  3. PACLITAXEL [Suspect]
     Dosage: 270 MG

REACTIONS (9)
  - ABDOMINAL PAIN [None]
  - DYSPNOEA [None]
  - LEUKOCYTOSIS [None]
  - HYPERHIDROSIS [None]
  - WOUND INFECTION [None]
  - ERYTHEMA [None]
  - CHILLS [None]
  - INCISION SITE PAIN [None]
  - CULTURE WOUND POSITIVE [None]
